FAERS Safety Report 5336891-X (Version None)
Quarter: 2007Q2

REPORT INFORMATION
  Report Type: 
  Country: None (occurrence: None)
  Receive Date: 20070529
  Receipt Date: 20070521
  Transmission Date: 20071010
  Serious: Yes (Hospitalization)
  Sender: FDA-Public Use
  Company Number: AU-AVENTIS-200714109GDDC

PATIENT
  Age: 69 Year
  Sex: Male

DRUGS (8)
  1. LANTUS [Suspect]
     Dates: start: 20000601
  2. AUTOPEN 24 [Suspect]
  3. ASTRIX [Concomitant]
     Dosage: DOSE: UNK
  4. NORVASC [Concomitant]
     Dosage: DOSE: UNK
  5. BACLOFEN [Concomitant]
     Dosage: DOSE: UNK
  6. MINAX [Concomitant]
     Dosage: DOSE: UNK
  7. NEXIUM [Concomitant]
     Dosage: DOSE: UNK
  8. UNKNOWN DRUG [Concomitant]
     Dosage: DOSE: UNK

REACTIONS (1)
  - CEREBROVASCULAR ACCIDENT [None]
